FAERS Safety Report 9756534 (Version 1)
Quarter: 2013Q4

REPORT INFORMATION
  Report Type: Spontaneous
  Country: US (occurrence: US)
  Receive Date: 20131213
  Receipt Date: 20131213
  Transmission Date: 20140711
  Serious: No
  Sender: FDA-Public Use
  Company Number: US-GLAXOSMITHKLINE-A1044827A

PATIENT
  Age: 47 Year
  Sex: Female

DRUGS (3)
  1. NICODERM [Suspect]
     Indication: EX-TOBACCO USER
     Route: 062
  2. NICODERM CQ 21MG [Suspect]
     Indication: EX-TOBACCO USER
     Route: 062
     Dates: start: 20130512
  3. NICODERM CQ CLEAR 7MG [Suspect]
     Indication: EX-TOBACCO USER
     Route: 062

REACTIONS (1)
  - Drug administration error [Unknown]
